FAERS Safety Report 8245333-6 (Version None)
Quarter: 2012Q1

REPORT INFORMATION
  Report Type: 
  Country: None (occurrence: None)
  Receive Date: 20120329
  Receipt Date: 20120319
  Transmission Date: 20120608
  Serious: Yes (Other)
  Sender: FDA-Public Use
  Company Number: US-BIOGENIDEC-2012BI010162

PATIENT
  Sex: Female

DRUGS (21)
  1. CRESTOR [Concomitant]
  2. VIVELLE-DOT [Concomitant]
     Route: 062
  3. PREMARIN [Concomitant]
     Route: 067
  4. VENLAFAXINE HCL EXTENDED-RELEASE [Concomitant]
  5. LORAZEPAM [Concomitant]
  6. PROAIR HFA [Concomitant]
     Route: 055
  7. AVONEX [Suspect]
     Indication: MULTIPLE SCLEROSIS
     Route: 030
     Dates: start: 20020914
  8. LORAZEPAM [Concomitant]
     Route: 048
  9. FLOVENT HFA [Concomitant]
     Route: 055
  10. PREDNISONE [Concomitant]
     Route: 048
  11. CEFUROXIME AXETIL [Concomitant]
  12. PREDNISONE [Concomitant]
     Route: 048
  13. LOTEMAX [Concomitant]
  14. LASTACAFT [Concomitant]
  15. ADVAIR DISKUS 100/50 [Concomitant]
     Route: 055
  16. PREDNISONE [Concomitant]
     Route: 048
  17. HYDROCORTISONE-PRAMOXINE [Concomitant]
     Route: 054
  18. CLONAZEPAM [Concomitant]
     Route: 048
  19. FLUOCINOLONE ACETONIDE [Concomitant]
     Route: 061
  20. AMBIEN [Concomitant]
     Indication: SLEEP DISORDER
     Route: 048
  21. NITROFURANTOIN MONOHYDRATE/MACROCRYSTALS [Concomitant]

REACTIONS (1)
  - HYSTERECTOMY [None]
